FAERS Safety Report 8475477-5 (Version None)
Quarter: 2012Q2

REPORT INFORMATION
  Report Type: 
  Country: None (occurrence: None)
  Receive Date: 20120628
  Receipt Date: 20120619
  Transmission Date: 20120825
  Serious: Yes (Hospitalization, Other)
  Sender: FDA-Public Use
  Company Number: US-ABBOTT-12P-163-0925911-00

PATIENT
  Sex: Female
  Weight: 44.492 kg

DRUGS (38)
  1. DOMPERIDONE [Concomitant]
     Indication: PRODUCT USED FOR UNKNOWN INDICATION
  2. BENTYL [Concomitant]
     Indication: ABDOMINAL PAIN
  3. LAMICTAL [Concomitant]
     Indication: PRODUCT USED FOR UNKNOWN INDICATION
     Dosage: 150 MG EVERY MORNING
  4. EMSAM [Concomitant]
     Indication: PRODUCT USED FOR UNKNOWN INDICATION
     Dosage: 6 MG - 24 HR PATCH WHICH IS AN MAOI
  5. MULTI-VITAMIN [Concomitant]
     Indication: PRODUCT USED FOR UNKNOWN INDICATION
  6. LASIX [Concomitant]
     Indication: PRODUCT USED FOR UNKNOWN INDICATION
  7. FLEXERIL [Concomitant]
     Indication: BACK PAIN
     Dosage: 10 TO 20MG AS NEEDED
  8. EXCEDRIN ASPIRIN FREE [Concomitant]
     Indication: PRODUCT USED FOR UNKNOWN INDICATION
  9. ZOFRAN [Concomitant]
     Indication: NAUSEA
     Route: 060
  10. METHOTREXATE [Concomitant]
     Indication: PRODUCT USED FOR UNKNOWN INDICATION
     Route: 030
  11. REQUIP [Concomitant]
  12. COMPAZINE [Concomitant]
     Indication: NAUSEA
  13. NORCO [Concomitant]
     Indication: PAIN
  14. CALCIUM CITRATE [Concomitant]
     Indication: PRODUCT USED FOR UNKNOWN INDICATION
     Dosage: 350MG EVERY AM AND 220MG EVERY NIGHT
  15. CALCITRIOL [Concomitant]
     Indication: VITAMIN D DECREASED
     Dosage: 0.25 MG ON MONDAY, WEDNESDAY AND FRIDAY
  16. LOVAZA [Concomitant]
     Indication: PRODUCT USED FOR UNKNOWN INDICATION
  17. HUMIRA [Suspect]
     Indication: CROHN'S DISEASE
     Dates: start: 20120303, end: 20120428
  18. BETHANECHOL [Concomitant]
     Indication: PRODUCT USED FOR UNKNOWN INDICATION
  19. OMEPRAZOLE [Concomitant]
     Indication: GASTRITIS
     Dosage: 20 MG EVERY MORNING
  20. RITALIN [Concomitant]
     Indication: PRODUCT USED FOR UNKNOWN INDICATION
     Dosage: 40MG EVERY AM AND 20MG EVERY NOON
  21. CLONAZEPAM [Concomitant]
     Indication: ANXIETY
     Dosage: 1 TO 1.5 OF 2 MG TABS AS NEEDED
  22. NEURONTIN [Concomitant]
     Indication: BACK PAIN
  23. VITAMIN B-12 [Concomitant]
     Indication: PRODUCT USED FOR UNKNOWN INDICATION
     Dosage: 1 CC MONTHLY
  24. ORABASE [Concomitant]
     Indication: CROHN'S DISEASE
     Dosage: PASTE TO THE TONGUE
  25. REGLAN [Concomitant]
     Indication: PRODUCT USED FOR UNKNOWN INDICATION
  26. MAGNESIUM GLYCINATE [Concomitant]
     Indication: PRODUCT USED FOR UNKNOWN INDICATION
     Dosage: 200 MG EVERY MORNING
  27. SYNTHROID [Concomitant]
     Indication: PRODUCT USED FOR UNKNOWN INDICATION
     Dosage: 0.025 MG 5/WEEK, SKIPS SUNDAY AND THURSDAY
  28. BACLOFEN [Concomitant]
  29. RECLAST [Concomitant]
     Indication: OSTEOPOROSIS
  30. IRON [Concomitant]
     Indication: ANAEMIA
     Route: 042
  31. REQUIP [Concomitant]
     Indication: MUSCLE SPASMS
  32. VICODIN [Concomitant]
     Indication: PAIN
     Dosage: 1 TO 2 TABLETS AS NEEDED
  33. DESOCORT [Concomitant]
     Indication: PRODUCT USED FOR UNKNOWN INDICATION
  34. BACLOFEN [Concomitant]
     Indication: MUSCLE SPASMS
  35. ERYTHROMYCIN [Concomitant]
     Indication: PRODUCT USED FOR UNKNOWN INDICATION
  36. AMBIEN CR [Concomitant]
     Indication: INSOMNIA
     Dosage: 12.5 MG EVERY NIGHT
  37. VITAMIN D [Concomitant]
     Indication: PRODUCT USED FOR UNKNOWN INDICATION
     Dosage: 5000 MG- PIERCED AND SQUEEZE UNDER TONGUE WEEKLY
  38. KENALOG [Concomitant]
     Indication: PRODUCT USED FOR UNKNOWN INDICATION

REACTIONS (8)
  - BASAL CELL CARCINOMA [None]
  - INJECTION SITE PAIN [None]
  - LIMB CRUSHING INJURY [None]
  - PRURITUS GENERALISED [None]
  - NIGHT SWEATS [None]
  - WRONG TECHNIQUE IN DRUG USAGE PROCESS [None]
  - DRUG INEFFECTIVE [None]
  - FALL [None]
